FAERS Safety Report 7714523-0 (Version None)
Quarter: 2011Q3

REPORT INFORMATION
  Report Type: 
  Country: None (occurrence: None)
  Receive Date: 20110829
  Receipt Date: 20110816
  Transmission Date: 20111222
  Serious: No
  Sender: FDA-Public Use
  Company Number: US-JNJFOC-20110809161

PATIENT
  Sex: Female
  Weight: 55.79 kg

DRUGS (4)
  1. FENTANYL-100 [Suspect]
     Indication: PRODUCT USED FOR UNKNOWN INDICATION
     Route: 062
  2. DURAGESIC-100 [Suspect]
     Indication: PAIN
     Route: 062
     Dates: start: 20110501
  3. FENTANYL CITRATE [Suspect]
     Indication: PAIN
     Route: 062
  4. PERCOCET [Concomitant]
     Route: 048

REACTIONS (4)
  - APPLICATION SITE BURN [None]
  - ADVERSE EVENT [None]
  - INAPPROPRIATE SCHEDULE OF DRUG ADMINISTRATION [None]
  - PRODUCT ADHESION ISSUE [None]
